FAERS Safety Report 8561152-5 (Version None)
Quarter: 2012Q3

REPORT INFORMATION
  Report Type: 
  Country: None (occurrence: None)
  Receive Date: 20120802
  Receipt Date: 20120720
  Transmission Date: 20120928
  Serious: No
  Sender: FDA-Public Use
  Company Number: US-ASTRAZENECA-2012SE00968

PATIENT
  Age: 56 Year
  Sex: Female

DRUGS (1)
  1. NEXIUM [Suspect]
     Route: 048

REACTIONS (8)
  - DRUG DOSE OMISSION [None]
  - CHEST PAIN [None]
  - ABDOMINAL PAIN UPPER [None]
  - ADVERSE EVENT [None]
  - ABDOMINAL DISCOMFORT [None]
  - PAIN [None]
  - MALAISE [None]
  - VOMITING [None]
